FAERS Safety Report 8855055 (Version 1)
Quarter: 2012Q4

REPORT INFORMATION
  Report Type: 
  Country: US (occurrence: US)
  Receive Date: 20121023
  Receipt Date: 20121023
  Transmission Date: 20130627
  Serious: No
  Sender: FDA-Public Use
  Company Number: US-PFIZER INC-2012260757

PATIENT
  Sex: Male

DRUGS (5)
  1. DOXYCYCLINE HYCLATE [Suspect]
     Indication: HIDRADENITIS
     Dosage: UNK
  2. SENSIPAR [Concomitant]
  3. PREDNISONE [Concomitant]
  4. ALLOPURINOL [Concomitant]
  5. LASIX [Concomitant]

REACTIONS (1)
  - Skin discolouration [Unknown]
